FAERS Safety Report 5902081-2 (Version None)
Quarter: 2008Q3

REPORT INFORMATION
  Report Type: 
  Country: None (occurrence: None)
  Receive Date: 20080929
  Receipt Date: 20080919
  Transmission Date: 20090109
  Serious: Yes (Hospitalization)
  Sender: FDA-Public Use
  Company Number: SE-SANOFI-SYNTHELABO-F01200800885

PATIENT
  Sex: Male
  Weight: 92 kg

DRUGS (14)
  1. FLUOROURACIL [Suspect]
     Dosage: 680 MG (400 MG/M2) IV BOLUS THEN 4200 MG (2400 MG/M2) INFUSION
     Route: 042
     Dates: start: 20080430, end: 20080501
  2. OXALIPLATIN [Suspect]
     Indication: COLORECTAL CANCER
     Route: 041
     Dates: start: 20080430, end: 20080430
  3. OXALIPLATIN [Suspect]
     Indication: METASTASES TO LIVER
     Route: 041
     Dates: start: 20080430, end: 20080430
  4. DUROFERON [Concomitant]
     Route: 048
     Dates: start: 20070608
  5. FOLACIN [Concomitant]
     Route: 048
     Dates: start: 20070608
  6. ATACAND HCT [Concomitant]
     Route: 048
  7. CLONAZEPAM [Concomitant]
     Route: 048
     Dates: start: 20080521
  8. TETRALYSAL [Concomitant]
     Route: 048
     Dates: start: 20070608
  9. ASPIRIN [Concomitant]
     Route: 048
     Dates: start: 20060915
  10. BEHEPAN [Concomitant]
     Dosage: 0.5 MG (2 IN ONE DAY)
     Route: 048
     Dates: start: 20080521
  11. POTASSIUM  CARBONATE [Concomitant]
     Route: 048
     Dates: start: 20080428
  12. AVASTIN [Suspect]
     Route: 041
     Dates: start: 20080430, end: 20080430
  13. ERBITUX [Suspect]
     Route: 041
     Dates: start: 20080507, end: 20080507
  14. CALCIUM FOLINATE [Suspect]
     Route: 041
     Dates: start: 20080430, end: 20080430

REACTIONS (1)
  - REVERSIBLE POSTERIOR LEUKOENCEPHALOPATHY SYNDROME [None]
